FAERS Safety Report 5064728-5 (Version None)
Quarter: 2006Q3

REPORT INFORMATION
  Report Type: 
  Country: None (occurrence: None)
  Receive Date: 20060728
  Receipt Date: 20060724
  Transmission Date: 20061208
  Serious: Yes (Hospitalization)
  Sender: FDA-Public Use
  Company Number: IT-ROCHE-456674

PATIENT
  Age: 90 Year
  Sex: Female

DRUGS (5)
  1. ROCEPHIN [Suspect]
     Indication: URINARY TRACT INFECTION
     Dosage: FORM REPORTED AS VIAL.
     Route: 030
     Dates: start: 20060704, end: 20060705
  2. ROCEPHIN [Suspect]
     Route: 030
  3. ASPIRIN [Concomitant]
     Indication: THROMBOSIS PROPHYLAXIS
     Route: 048
     Dates: start: 20030615, end: 20060615
  4. OMEPRAZOLE [Concomitant]
     Route: 048
     Dates: start: 20030615, end: 20060615
  5. XANAX [Concomitant]
     Indication: ANXIETY
     Route: 048
     Dates: start: 20040615, end: 20060615

REACTIONS (4)
  - ERYTHEMA [None]
  - PRURITUS GENERALISED [None]
  - RASH [None]
  - URTICARIA [None]
